FAERS Safety Report 5939593-1 (Version None)
Quarter: 2008Q4

REPORT INFORMATION
  Report Type: 
  Country: None (occurrence: None)
  Receive Date: 20081030
  Receipt Date: 20081020
  Transmission Date: 20090506
  Serious: Yes (Other)
  Sender: FDA-Public Use
  Company Number: US024921

PATIENT
  Age: 19 Year
  Sex: Male

DRUGS (1)
  1. PROVIGIL [Suspect]
     Dosage: ORAL

REACTIONS (1)
  - GRAND MAL CONVULSION [None]
